FAERS Safety Report 13070665 (Version 1)
Quarter: 2016Q4

REPORT INFORMATION
  Report Type: Spontaneous
  Country: US (occurrence: US)
  Receive Date: 20161229
  Receipt Date: 20161229
  Transmission Date: 20170207
  Serious: Yes (Hospitalization)
  Sender: FDA-Public Use
  Company Number: US-AMGEN-USASP2016182374

PATIENT
  Age: 56 Year
  Sex: Female

DRUGS (4)
  1. BACLOFEN. [Concomitant]
     Active Substance: BACLOFEN
  2. TEGRETOL [Concomitant]
     Active Substance: CARBAMAZEPINE
  3. ZANTAC [Concomitant]
     Active Substance: RANITIDINE HYDROCHLORIDE
  4. PROLIA [Suspect]
     Active Substance: DENOSUMAB
     Indication: OSTEOPOROSIS POSTMENOPAUSAL
     Dosage: UNK, UNK
     Route: 065
     Dates: start: 20161121

REACTIONS (11)
  - Musculoskeletal stiffness [Unknown]
  - Dyspnoea [Unknown]
  - Muscle twitching [Unknown]
  - Gait spastic [Recovered/Resolved]
  - Palpitations [Not Recovered/Not Resolved]
  - Pulmonary function test decreased [Unknown]
  - Hypocalcaemia [Unknown]
  - Gait disturbance [Unknown]
  - Type IV hypersensitivity reaction [Unknown]
  - Nasal congestion [Unknown]
  - Myalgia [Unknown]

NARRATIVE: CASE EVENT DATE: 201612
